FAERS Safety Report 11318387 (Version 2)
Quarter: 2017Q2

REPORT INFORMATION
  Report Type: Report from Study
  Country: US (occurrence: US)
  Receive Date: 20150728
  Receipt Date: 20170523
  Transmission Date: 20170829
  Serious: Yes (Hospitalization)
  Sender: FDA-Public Use
  Company Number: US-CELGENEUS-USA-2015074908

PATIENT
  Age: 81 Year
  Sex: Female
  Weight: 95.2 kg

DRUGS (3)
  1. POMALYST [Suspect]
     Active Substance: POMALIDOMIDE
     Dosage: 1 MILLIGRAM
     Route: 048
     Dates: start: 20150401, end: 20150402
  2. POMALYST [Suspect]
     Active Substance: POMALIDOMIDE
     Dosage: 1 MILLIGRAM
     Route: 048
     Dates: start: 20151001, end: 20161023
  3. POMALYST [Suspect]
     Active Substance: POMALIDOMIDE
     Indication: PLASMA CELL MYELOMA
     Dosage: 4 MILLIGRAM
     Route: 048
     Dates: start: 20150116, end: 20150313

REACTIONS (1)
  - Asthenia [Unknown]

NARRATIVE: CASE EVENT DATE: 20150402
